FAERS Safety Report 5151202-0 (Version None)
Quarter: 2006Q4

REPORT INFORMATION
  Report Type: 
  Country: None (occurrence: None)
  Receive Date: 20061114
  Receipt Date: 20061114
  Transmission Date: 20070319
  Serious: No
  Sender: FDA-Public Use
  Company Number: None

PATIENT
  Sex: Male
  Weight: 104.3273 kg

DRUGS (4)
  1. SUNMARK     500MG     MCKESSON [Suspect]
     Indication: ARTHRALGIA
     Dosage: 2 TABLETS    6 HOURS
     Dates: start: 20061010, end: 20061110
  2. SUNMARK     500MG     MCKESSON [Suspect]
     Indication: BACK PAIN
     Dosage: 2 TABLETS    6 HOURS
     Dates: start: 20061010, end: 20061110
  3. SUNMARK     500MG     MCKESSON [Suspect]
     Indication: PAIN IN EXTREMITY
     Dosage: 2 TABLETS    6 HOURS
     Dates: start: 20061010, end: 20061110
  4. SUNMARK     500MG     MCKESSON [Suspect]
     Indication: TRAUMATIC ARTHRITIS
     Dosage: 2 TABLETS    6 HOURS
     Dates: start: 20061010, end: 20061110

REACTIONS (3)
  - ABDOMINAL PAIN UPPER [None]
  - MUSCLE DISORDER [None]
  - PHARMACEUTICAL PRODUCT COMPLAINT [None]
